FAERS Safety Report 24720849 (Version 1)
Quarter: 2024Q4

REPORT INFORMATION
  Report Type: Spontaneous
  Country: IT (occurrence: IT)
  Receive Date: 20241211
  Receipt Date: 20241211
  Transmission Date: 20250114
  Serious: Yes (Other)
  Sender: MERCK
  Company Number: None

PATIENT
  Age: 11 Year
  Sex: Male
  Weight: 32 kg

DRUGS (4)
  1. APREPITANT [Interacting]
     Active Substance: APREPITANT
     Indication: Prophylaxis of nausea and vomiting
     Route: 048
     Dates: start: 20240919, end: 20240919
  2. IFOSFAMIDE [Suspect]
     Active Substance: IFOSFAMIDE
     Indication: Hepatic sarcoma
     Dosage: 3 G/M2
     Route: 042
     Dates: start: 20240919, end: 20240919
  3. VINCRISTINE [Concomitant]
     Active Substance: VINCRISTINE
     Indication: Hepatic sarcoma
     Dosage: 1.5 MG/M2
     Route: 042
     Dates: start: 20240919, end: 20240919
  4. ONDANSETRON [Concomitant]
     Active Substance: ONDANSETRON
     Dates: start: 20240919, end: 20240922

REACTIONS (2)
  - Generalised tonic-clonic seizure [Recovered/Resolved]
  - Agitation [Recovered/Resolved]

NARRATIVE: CASE EVENT DATE: 20240919
